FAERS Safety Report 23370362 (Version 1)
Quarter: 2024Q1

REPORT INFORMATION
  Report Type: Spontaneous
  Country: US (occurrence: None)
  Receive Date: 20240105
  Receipt Date: 20240105
  Transmission Date: 20240410
  Serious: Yes (Hospitalization)
  Sender: FDA-Public Use
  Company Number: None

PATIENT
  Age: 67 Year
  Sex: Female
  Weight: 77.4 kg

DRUGS (11)
  1. BOTOX [Suspect]
     Active Substance: ONABOTULINUMTOXINA
  2. maxalt - generic rizatriptan [Concomitant]
  3. Phenergan with Coedine [Concomitant]
  4. TESSALON [Concomitant]
  5. Perles [Concomitant]
  6. VITAMINS [Concomitant]
     Active Substance: VITAMINS
  7. VITAMIN D [Concomitant]
     Active Substance: VITAMIN D NOS
  8. MAGNESIUM [Concomitant]
     Active Substance: MAGNESIUM
  9. COENZYME Q10 [Concomitant]
     Active Substance: DIETARY SUPPLEMENT\UBIDECARENONE
  10. GLUCOSAMINE [Concomitant]
     Active Substance: GLUCOSAMINE
  11. LYSINE [Concomitant]
     Active Substance: LYSINE

REACTIONS (10)
  - Respiratory disorder [None]
  - Ear pain [None]
  - Dysphonia [None]
  - Cough [None]
  - Blood pressure measurement [None]
  - Speech disorder [None]
  - Cerebrovascular accident [None]
  - Vomiting [None]
  - Vocal cord paralysis [None]
  - Choking [None]

NARRATIVE: CASE EVENT DATE: 20231127
